FAERS Safety Report 5461632-5 (Version None)
Quarter: 2007Q3

REPORT INFORMATION
  Report Type: 
  Country: None (occurrence: None)
  Receive Date: 20070920
  Receipt Date: 20061116
  Transmission Date: 20080115
  Serious: No
  Sender: FDA-Public Use
  Company Number: A0627651A

PATIENT
  Age: 49 Year
  Sex: Male

DRUGS (1)
  1. ABREVA [Suspect]
     Dosage: 1APP AS DIRECTED
     Route: 061

REACTIONS (6)
  - APPLICATION SITE DISCOLOURATION [None]
  - APPLICATION SITE ERYTHEMA [None]
  - APPLICATION SITE RASH [None]
  - APPLICATION SITE SCAR [None]
  - DRUG INEFFECTIVE [None]
  - ORAL HERPES [None]
